FAERS Safety Report 16786233 (Version 2)
Quarter: 2020Q1

REPORT INFORMATION
  Report Type: Spontaneous
  Country: DE (occurrence: DE)
  Receive Date: 20190909
  Receipt Date: 20200121
  Transmission Date: 20200409
  Serious: Yes (Hospitalization, Other)
  Sender: FDA-Public Use
  Company Number: DE-PFIZER INC-2019383493

PATIENT
  Age: 75 Year
  Sex: Male

DRUGS (15)
  1. AMLODIPINE BESILATE [Suspect]
     Active Substance: AMLODIPINE BESYLATE
     Dosage: UNK, 2X/DAY
     Route: 048
     Dates: start: 20190720
  2. SIMVASTATIN. [Interacting]
     Active Substance: SIMVASTATIN
     Indication: DYSLIPIDAEMIA
     Dosage: UNK UNK, 1X/DAY
     Route: 048
  3. METAMIZOL [Interacting]
     Active Substance: METAMIZOLE SODIUM
     Dosage: UNK, 1/2-0-1/2-0
     Route: 048
  4. MORPHINE [Concomitant]
     Active Substance: MORPHINE
     Dosage: 2 DF, 1X/DAY (UNK, TWO TIMES A DAY)
     Route: 065
  5. FOSTER [PIROXICAM] [Concomitant]
     Dosage: 2 DF, 1X/DAY (TWO TIMES A DAY)
     Route: 065
  6. ACE [HYOSCINE METHOBROMIDE] [Interacting]
     Active Substance: METHSCOPOLAMINE BROMIDE
     Dosage: UNK UNK, 1X/DAY
     Route: 048
     Dates: start: 20190720
  7. ACETYLSALICYLIC ACID [Interacting]
     Active Substance: ASPIRIN
     Dosage: UNK UNK, 1X/DAY
     Route: 048
  8. SPIRIVA [Concomitant]
     Active Substance: TIOTROPIUM BROMIDE MONOHYDRATE
     Dosage: 36 UG, 1X/DAY
  9. CANDESARTAN CILEXETIL. [Interacting]
     Active Substance: CANDESARTAN CILEXETIL
     Dosage: UNK, 1X/DAY
     Route: 048
  10. SPIRIVA RESPIMAT [Interacting]
     Active Substance: TIOTROPIUM BROMIDE
     Dosage: UNK, 2X/DAY
  11. MOVICOL [Concomitant]
     Active Substance: POLYETHYLENE GLYCOL 3350\POTASSIUM CHLORIDE\SODIUM BICARBONATE\SODIUM CHLORIDE
     Dosage: UNK
  12. ALENDRONATE [Suspect]
     Active Substance: ALENDRONATE SODIUM
     Dosage: UNK
     Route: 048
     Dates: start: 2017
  13. COLECALCIFEROL [Interacting]
     Active Substance: CHOLECALCIFEROL
     Dosage: UNK, 1X/WEEK
     Route: 048
  14. ROFLUMILAST. [Interacting]
     Active Substance: ROFLUMILAST
     Dosage: UNK UNK, 1X/DAY
     Route: 048
  15. BERODUAL [Interacting]
     Active Substance: FENOTEROL HYDROBROMIDE\IPRATROPIUM BROMIDE
     Dosage: UNK UNK, AS NEEDED

REACTIONS (5)
  - Dizziness [Unknown]
  - Drug interaction [Unknown]
  - Off label use [Unknown]
  - Nausea [Unknown]
  - Cerebrovascular accident [Recovered/Resolved]

NARRATIVE: CASE EVENT DATE: 20190720
